FAERS Safety Report 16414042 (Version 5)
Quarter: 2023Q4

REPORT INFORMATION
  Report Type: Spontaneous
  Country: IT (occurrence: IT)
  Receive Date: 20190611
  Receipt Date: 20231229
  Transmission Date: 20240109
  Serious: Yes (Other)
  Sender: FDA-Public Use
  Company Number: IT-AUROBINDO-AUR-APL-2019-033654

PATIENT
  Age: 56 Year
  Sex: Male

DRUGS (24)
  1. DOXORUBICIN [Suspect]
     Active Substance: DOXORUBICIN
     Indication: Plasma cell myeloma
     Dosage: UNK UNK, CYCLICAL (4 CYCLES)
     Route: 065
     Dates: start: 20100115, end: 20100406
  2. DOXORUBICIN [Suspect]
     Active Substance: DOXORUBICIN
     Dosage: UNK UNK, CYCLICAL (2 CYCLES)
     Route: 065
     Dates: start: 20100616, end: 20100803
  3. LAMIVUDINE [Suspect]
     Active Substance: LAMIVUDINE
     Indication: Product used for unknown indication
     Dosage: UNK
     Route: 065
  4. MELPHALAN [Suspect]
     Active Substance: MELPHALAN
     Indication: Plasma cell myeloma
     Dosage: UNK UNK, CYCLICAL (6 CYCLES)
     Route: 065
     Dates: start: 20090115, end: 20090604
  5. MELPHALAN [Suspect]
     Active Substance: MELPHALAN
     Dosage: UNK UNK, CYCLICAL (1 CYCLE)
     Route: 065
     Dates: start: 20140625
  6. ALPELISIB [Suspect]
     Active Substance: ALPELISIB
     Indication: Plasma cell myeloma
     Dosage: UNK (11 CYCLES)
     Route: 065
     Dates: start: 20140807, end: 20150526
  7. DEXAMETHASONE [Suspect]
     Active Substance: DEXAMETHASONE
     Indication: Plasma cell myeloma
     Dosage: UNK, CYCLICAL (FOUR CYCLES)
     Route: 065
     Dates: start: 20080701, end: 20080923
  8. DEXAMETHASONE [Suspect]
     Active Substance: DEXAMETHASONE
     Dosage: UNK, CYCLICAL (THREE CYCLES)
     Route: 065
     Dates: start: 20091030, end: 20091211
  9. DEXAMETHASONE [Suspect]
     Active Substance: DEXAMETHASONE
     Dosage: UNK, CYCLICAL (2 CYCLES)
     Route: 065
     Dates: start: 20100616, end: 20100803
  10. DEXAMETHASONE [Suspect]
     Active Substance: DEXAMETHASONE
     Dosage: UNK, CYCLICAL (7 CYCLES)
     Route: 065
     Dates: start: 20151115, end: 20160225
  11. DEXAMETHASONE [Suspect]
     Active Substance: DEXAMETHASONE
     Dosage: UNK, CYCLICAL (4 CYCLES)
     Route: 065
     Dates: start: 20100115, end: 20100406
  12. LENALIDOMIDE [Suspect]
     Active Substance: LENALIDOMIDE
     Indication: Plasma cell myeloma
     Dosage: UNK, CYCLICAL (6 CYCLES)
     Route: 065
     Dates: start: 20090115, end: 20090604
  13. LENALIDOMIDE [Suspect]
     Active Substance: LENALIDOMIDE
     Dosage: UNK, CYCLICAL (4 CYCLES)
     Route: 065
     Dates: start: 20080701, end: 20080923
  14. CYCLOPHOSPHAMIDE [Suspect]
     Active Substance: CYCLOPHOSPHAMIDE
     Indication: Plasma cell myeloma
     Dosage: UNK, CYCLICAL (2 CYCLES)
     Route: 065
     Dates: start: 20100616, end: 20100803
  15. CYCLOPHOSPHAMIDE [Suspect]
     Active Substance: CYCLOPHOSPHAMIDE
     Dosage: UNK, CYCLICAL (SINGLE CYCLE)
     Route: 065
     Dates: start: 20081121
  16. ETOPOSIDE [Suspect]
     Active Substance: ETOPOSIDE
     Indication: Plasma cell myeloma
     Dosage: UNK, CYCLICAL (2 CYCLES)
     Route: 065
     Dates: start: 20100616, end: 20100803
  17. PREDNISONE [Suspect]
     Active Substance: PREDNISONE
     Indication: Plasma cell myeloma
     Dosage: UNK, CYCLICAL (6 CYCLES)
     Route: 065
     Dates: start: 20090115, end: 20090604
  18. PREDNISONE [Suspect]
     Active Substance: PREDNISONE
     Dosage: UNK, CYCLICAL (1 CYCLE)
     Route: 065
     Dates: start: 20140625
  19. POMALIDOMIDE [Suspect]
     Active Substance: POMALIDOMIDE
     Indication: Plasma cell myeloma
     Dosage: UNK UNK, CYCLICAL (7 CYCLES)
     Route: 065
     Dates: start: 20151115, end: 20160225
  20. BORTEZOMIB [Suspect]
     Active Substance: BORTEZOMIB
     Indication: Plasma cell myeloma
     Dosage: UNK, CYCLICAL (3 CYCLES)
     Route: 065
     Dates: start: 20091030, end: 20091211
  21. BORTEZOMIB [Suspect]
     Active Substance: BORTEZOMIB
     Dosage: UNK, CYCLICAL (4 CYCLES)
     Route: 065
     Dates: start: 20100115, end: 20100406
  22. BORTEZOMIB [Suspect]
     Active Substance: BORTEZOMIB
     Dosage: UNK, CYCLICAL (2 CYCLES)
     Route: 065
     Dates: start: 20100616, end: 20100803
  23. CARFILZOMIB [Suspect]
     Active Substance: CARFILZOMIB
     Indication: Plasma cell myeloma
     Dosage: UNK, CYCLICAL (7 CYCLES)
     Route: 065
     Dates: start: 20151115, end: 20160225
  24. BENDAMUSTINE [Suspect]
     Active Substance: BENDAMUSTINE
     Indication: Plasma cell myeloma
     Dosage: UNK, CYCLICAL (5 CYCLES)
     Route: 042
     Dates: start: 20140115, end: 20140520

REACTIONS (5)
  - Hepatitis B reactivation [Not Recovered/Not Resolved]
  - Malignant neoplasm progression [Unknown]
  - Plasma cell myeloma [Unknown]
  - Drug resistance [Unknown]
  - Product use in unapproved indication [Unknown]
